FAERS Safety Report 11384159 (Version 1)
Quarter: 2015Q3

REPORT INFORMATION
  Report Type: Spontaneous
  Country: US (occurrence: US)
  Receive Date: 20150811
  Receipt Date: 20150811
  Transmission Date: 20151125
  Serious: No
  Sender: FDA-Public Use
  Company Number: US-ELI_LILLY_AND_COMPANY-US201008001557

PATIENT
  Age: 69 Year
  Sex: Male

DRUGS (4)
  1. LEVITRA [Concomitant]
     Active Substance: VARDENAFIL HYDROCHLORIDE TRIHYDRATE
     Dosage: 20 MG, AS NEEDED
  2. CIALIS [Suspect]
     Active Substance: TADALAFIL
     Dosage: 20 MG, UNK
  3. CIALIS [Suspect]
     Active Substance: TADALAFIL
     Indication: REHABILITATION THERAPY
     Dosage: 5 MG, DAILY (1/D)
  4. VIAGRA [Concomitant]
     Active Substance: SILDENAFIL CITRATE
     Dosage: 50 MG, AS NEEDED

REACTIONS (2)
  - Intentional product misuse [Not Recovered/Not Resolved]
  - Off label use [Not Recovered/Not Resolved]
